FAERS Safety Report 4441570-7 (Version None)
Quarter: 2004Q3

REPORT INFORMATION
  Report Type: 
  Country: None (occurrence: None)
  Receive Date: 20040728
  Receipt Date: 20040506
  Transmission Date: 20050211
  Serious: No
  Sender: FDA-Public Use
  Company Number: USA040566902

PATIENT
  Age: 9 Year
  Sex: Male

DRUGS (1)
  1. STRATTERA [Suspect]
     Dosage: 18 MG DAY
     Dates: start: 20040506

REACTIONS (4)
  - HYPOAESTHESIA ORAL [None]
  - NAUSEA [None]
  - PHARYNGEAL HYPOAESTHESIA [None]
  - VOMITING [None]
